FAERS Safety Report 9499723 (Version 1)
Quarter: 2013Q1

REPORT INFORMATION
  Report Type: Spontaneous
  Country: US (occurrence: None)
  Receive Date: 20130107
  Receipt Date: 20130107
  Transmission Date: 20140127
  Serious: Yes (Hospitalization, Other)
  Sender: FDA-Public Use
  Company Number: PHEH2012US020765

PATIENT
  Age: 43 Year
  Sex: Female
  Weight: 58.8 kg

DRUGS (8)
  1. GILENYA [Suspect]
     Indication: RELAPSING-REMITTING MULTIPLE SCLEROSIS
     Route: 048
     Dates: start: 20121018, end: 20121019
  2. FISH OIL (FISH OIL) [Concomitant]
  3. GOGI EXTRACT [Concomitant]
  4. NATALCARE (MINERAL NOS, VITAMINS NOS) [Concomitant]
  5. PROGESTERONE (PROGESTERONE) [Concomitant]
  6. SYNTHROID 9LEVOTHYROXINE SODIUIM) [Concomitant]
  7. VITAMIN B12 (CYANOCOBALAMIN) [Concomitant]
  8. VITAMIN D3 (COLECALCIFEROL) [Concomitant]

REACTIONS (3)
  - Bradycardia [None]
  - Chest discomfort [None]
  - Blood pressure decreased [None]
